FAERS Safety Report 25506849 (Version 2)
Quarter: 2025Q4

REPORT INFORMATION
  Report Type: Spontaneous
  Country: US (occurrence: US)
  Receive Date: 20250702
  Receipt Date: 20251205
  Transmission Date: 20260117
  Serious: Yes (Other)
  Sender: RADIUS PHARM
  Company Number: US-RADIUS HEALTH INC.-US-RADIUS-25046194

PATIENT
  Sex: Female

DRUGS (1)
  1. TYMLOS [Suspect]
     Active Substance: ABALOPARATIDE
     Indication: Bone disorder
     Dosage: 80 MICROGRAM, QD
     Route: 058

REACTIONS (10)
  - Haemoglobinuria [Unknown]
  - Peripheral coldness [Unknown]
  - Pelvic discomfort [Unknown]
  - Seasonal allergy [Unknown]
  - Palpitations [Unknown]
  - Dizziness [Unknown]
  - Headache [Recovered/Resolved]
  - Injection site bruising [Unknown]
  - Fatigue [Unknown]
  - Injection site haemorrhage [Unknown]
